FAERS Safety Report 7021188-2 (Version None)
Quarter: 2010Q3

REPORT INFORMATION
  Report Type: 
  Country: None (occurrence: None)
  Receive Date: 20100929
  Receipt Date: 20100925
  Transmission Date: 20110219
  Serious: Yes (Other)
  Sender: FDA-Public Use
  Company Number: CHPA2010BR15265

PATIENT
  Sex: Female

DRUGS (1)
  1. TRIMEDAL TOSSE (NCH) [Suspect]
     Dosage: UNK, UNK
     Route: 048

REACTIONS (1)
  - LARYNGEAL OEDEMA [None]
